FAERS Safety Report 25815131 (Version 1)
Quarter: 2025Q3

REPORT INFORMATION
  Report Type: Spontaneous
  Country: CA (occurrence: CA)
  Receive Date: 20250918
  Receipt Date: 20250918
  Transmission Date: 20251020
  Serious: Yes (Other)
  Sender: AUROBINDO
  Company Number: CA-AUROBINDO-AUR-APL-2025-046697

PATIENT
  Age: 32 Year
  Sex: Female

DRUGS (1)
  1. VALGANCICLOVIR [Suspect]
     Active Substance: VALGANCICLOVIR
     Indication: Cytomegalovirus infection
     Dosage: 900 MILLIGRAM, TWO TIMES A DAY (2 EVERY 1 DAYS)
     Route: 065

REACTIONS (3)
  - Retinal occlusive vasculitis [Unknown]
  - Hypertransaminasaemia [Unknown]
  - Off label use [Unknown]
